FAERS Safety Report 8785596 (Version 2)
Quarter: 2012Q4

REPORT INFORMATION
  Report Type: 
  Country: US (occurrence: US)
  Receive Date: 20120914
  Receipt Date: 20121001
  Transmission Date: 20130627
  Serious: No
  Sender: FDA-Public Use
  Company Number: US-B.I. PHARMACEUTICALS,INC./RIDGEFIELD-2012-BP-22237BP

PATIENT
  Age: 74 Year
  Sex: Female
  Weight: 73 kg

DRUGS (11)
  1. SPIRIVA [Suspect]
     Indication: TRAUMATIC LUNG INJURY
     Dosage: 18 mcg
     Route: 055
     Dates: start: 20120901, end: 20120921
  2. SPIRIVA [Suspect]
     Indication: LUNG DISORDER
  3. SPIRIVA [Suspect]
     Indication: CHRONIC OBSTRUCTIVE PULMONARY DISEASE
  4. METOPROLOL [Concomitant]
     Dosage: 25 mg
     Route: 048
     Dates: start: 2010
  5. VITAMIN COMPLEX: CALCIUM, MAGNESIUM, AND ZINC [Concomitant]
     Indication: OSTEOPENIA
     Route: 048
     Dates: start: 2010
  6. LEVOTHYROXINE [Concomitant]
     Indication: HYPOTHYROIDISM
     Dosage: 0.088 mcg
     Route: 048
     Dates: start: 1992
  7. LEVOTHYROXINE [Concomitant]
     Indication: HYPOTHYROIDISM
  8. PEPCID [Concomitant]
     Indication: GASTROOESOPHAGEAL REFLUX DISEASE
     Dosage: 40 mg
     Route: 048
     Dates: start: 2000
  9. ASPIRIN [Concomitant]
     Indication: PROPHYLAXIS
     Route: 048
     Dates: start: 2011
  10. LIPITOR [Concomitant]
     Indication: BLOOD CHOLESTEROL INCREASED
     Route: 048
     Dates: start: 2010
  11. SIMVASTATIN [Concomitant]
     Indication: BLOOD CHOLESTEROL ABNORMAL
     Dosage: 20 mg
     Route: 048
     Dates: start: 2010

REACTIONS (3)
  - Chest pain [Not Recovered/Not Resolved]
  - Chest pain [Not Recovered/Not Resolved]
  - Dry mouth [Not Recovered/Not Resolved]
